FAERS Safety Report 12507504 (Version 2)
Quarter: 2016Q3

REPORT INFORMATION
  Report Type: Spontaneous
  Country: BE (occurrence: BE)
  Receive Date: 20160629
  Receipt Date: 20160729
  Transmission Date: 20161109
  Serious: Yes (Other)
  Sender: FDA-Public Use
  Company Number: BE-ROCHE-1782796

PATIENT
  Sex: Female

DRUGS (17)
  1. AVASTIN [Suspect]
     Active Substance: BEVACIZUMAB
     Dosage: UNK, OS
     Route: 065
     Dates: start: 20131114
  2. AVASTIN [Suspect]
     Active Substance: BEVACIZUMAB
     Dosage: UNK, OS
     Route: 065
     Dates: start: 20140102
  3. AVASTIN [Suspect]
     Active Substance: BEVACIZUMAB
     Dosage: UNK, OS
     Route: 065
     Dates: start: 20140206
  4. AVASTIN [Suspect]
     Active Substance: BEVACIZUMAB
     Dosage: UNK, OS
     Route: 065
     Dates: start: 20110804
  5. AVASTIN [Suspect]
     Active Substance: BEVACIZUMAB
     Dosage: UNK, OS
     Route: 065
     Dates: start: 20130409
  6. LUCENTIS [Suspect]
     Active Substance: RANIBIZUMAB
     Indication: CHOROIDAL NEOVASCULARISATION
     Dosage: UNK, IN THE LEFT EYE
     Route: 050
     Dates: start: 20100127
  7. LUCENTIS [Suspect]
     Active Substance: RANIBIZUMAB
     Dosage: UNK, IN THE LEFT EYE
     Route: 050
     Dates: start: 20100715, end: 20100715
  8. AVASTIN [Suspect]
     Active Substance: BEVACIZUMAB
     Indication: CHOROIDAL NEOVASCULARISATION
     Dosage: UNK, OS
     Route: 065
     Dates: start: 20101021
  9. AVASTIN [Suspect]
     Active Substance: BEVACIZUMAB
     Dosage: UNK, OS
     Route: 065
     Dates: start: 20130924
  10. AVASTIN [Suspect]
     Active Substance: BEVACIZUMAB
     Dosage: UNK, OS
     Route: 065
     Dates: start: 20140515
  11. LUCENTIS [Suspect]
     Active Substance: RANIBIZUMAB
     Dosage: UNK, IN THE LEFT EYE
     Route: 050
     Dates: start: 20100401
  12. AVASTIN [Suspect]
     Active Substance: BEVACIZUMAB
     Dosage: UNK, OS
     Route: 065
     Dates: start: 20140313
  13. LUCENTIS [Suspect]
     Active Substance: RANIBIZUMAB
     Dosage: UNK, IN THE LEFT EYE
     Route: 050
     Dates: start: 20100304
  14. AVASTIN [Suspect]
     Active Substance: BEVACIZUMAB
     Dosage: UNK, OS
     Route: 065
     Dates: start: 20110527
  15. AVASTIN [Suspect]
     Active Substance: BEVACIZUMAB
     Dosage: UNK, OS
     Route: 065
     Dates: start: 20101202
  16. AVASTIN [Suspect]
     Active Substance: BEVACIZUMAB
     Dosage: UNK, OS
     Route: 065
     Dates: start: 20111006
  17. AVASTIN [Suspect]
     Active Substance: BEVACIZUMAB
     Dosage: UNK, OS
     Route: 065
     Dates: start: 20130214

REACTIONS (6)
  - Off label use [Unknown]
  - Choroidal neovascularisation [Not Recovered/Not Resolved]
  - Visual acuity reduced [Not Recovered/Not Resolved]
  - Haemorrhage [Unknown]
  - Retinal degeneration [Not Recovered/Not Resolved]
  - Macular oedema [Not Recovered/Not Resolved]
